FAERS Safety Report 6658044-5 (Version None)
Quarter: 2010Q1

REPORT INFORMATION
  Report Type: 
  Country: None (occurrence: None)
  Receive Date: 20100330
  Receipt Date: 20100318
  Transmission Date: 20100710
  Serious: Yes (Hospitalization)
  Sender: FDA-Public Use
  Company Number: US-CELGENEUS-163-20785-10031794

PATIENT
  Sex: Male

DRUGS (4)
  1. THALOMID [Suspect]
     Indication: MULTIPLE MYELOMA
     Route: 048
     Dates: start: 20090601
  2. THALOMID [Suspect]
     Route: 048
     Dates: start: 20080801
  3. THALOMID [Suspect]
     Dosage: 50MG-200MG
     Route: 048
     Dates: start: 20070901
  4. THALOMID [Suspect]
     Route: 048
     Dates: start: 20070601

REACTIONS (2)
  - APPENDICITIS [None]
  - LABORATORY TEST ABNORMAL [None]
